FAERS Safety Report 6309936-8 (Version None)
Quarter: 2009Q3

REPORT INFORMATION
  Report Type: 
  Country: None (occurrence: None)
  Receive Date: 20090814
  Receipt Date: 20090807
  Transmission Date: 20100115
  Serious: Yes (Other)
  Sender: FDA-Public Use
  Company Number: B0585160A

PATIENT
  Sex: Female

DRUGS (3)
  1. VENTOLIN DS [Suspect]
     Indication: DRUG USE FOR UNKNOWN INDICATION
     Route: 055
  2. VENTOLIN [Concomitant]
  3. VENTOLIN [Concomitant]

REACTIONS (3)
  - ASTHMA [None]
  - DYSGEUSIA [None]
  - PRODUCT QUALITY ISSUE [None]
